FAERS Safety Report 8493836-1 (Version None)
Quarter: 2012Q3

REPORT INFORMATION
  Report Type: 
  Country: None (occurrence: None)
  Receive Date: 20120706
  Receipt Date: 20120702
  Transmission Date: 20120928
  Serious: Yes (Other)
  Sender: FDA-Public Use
  Company Number: PHHY2012FR056897

PATIENT
  Age: 66 Year
  Sex: Female

DRUGS (2)
  1. RITUXAN [Suspect]
     Indication: RHEUMATOID VASCULITIS
     Dosage: 1 G, BID
  2. PREDNISONE [Suspect]
     Indication: RHEUMATOID VASCULITIS
     Dosage: 7 MG/ DAY
     Route: 048

REACTIONS (2)
  - INFECTION [None]
  - FISTULA [None]
